FAERS Safety Report 9292609 (Version 1)
Quarter: 2013Q1

REPORT INFORMATION
  Report Type: Spontaneous
  Country: US (occurrence: None)
  Receive Date: 20121212
  Receipt Date: 20121212
  Transmission Date: 20140127
  Serious: No
  Sender: FDA-Public Use
  Company Number: 1210USA003098

PATIENT
  Age: 74 Year
  Sex: Female

DRUGS (11)
  1. VICTRELIS [Suspect]
     Indication: HEPATITIS C
     Route: 048
  2. PEGASYS [Suspect]
     Dates: start: 20120629
  3. RIBASPHERE [Suspect]
     Dates: start: 20120629
  4. SINGULAIR [Concomitant]
  5. DIOVAN HCT (HYDROCHLOROTHIAZIDE, VALSARTAN) [Concomitant]
  6. ASACOL (MESALAMINE) [Concomitant]
  7. ADVAIR (FLUTICASONE PROPIONATE, SALMETEROL XINAFOATE) [Concomitant]
  8. RANITIDINE (RANITIDINE) [Concomitant]
  9. ALBUTEROL SULFATE (ALBUTEROL SULFATE) [Concomitant]
  10. OMEGA-3 MARINE TRIGLYCERIDES (OMEGA-3 MARINE TRIGLYCERIDES) [Concomitant]
  11. CALCIUM (UNSPECIFIED) (CALCIUM (UNSPECIFIED)) [Concomitant]

REACTIONS (1)
  - Anaemia [None]
